FAERS Safety Report 4360426-1 (Version None)
Quarter: 2004Q2

REPORT INFORMATION
  Report Type: 
  Country: None (occurrence: None)
  Receive Date: 20040514
  Receipt Date: 20040506
  Transmission Date: 20050107
  Serious: Yes (Hospitalization, Disabling)
  Sender: FDA-Public Use
  Company Number: 2004019163

PATIENT
  Sex: Male

DRUGS (1)
  1. NORVASC [Suspect]
     Indication: ILL-DEFINED DISORDER

REACTIONS (1)
  - HOSPITALISATION [None]
